FAERS Safety Report 5369134-1 (Version None)
Quarter: 2007Q2

REPORT INFORMATION
  Report Type: 
  Country: None (occurrence: None)
  Receive Date: 20070625
  Receipt Date: 20070209
  Transmission Date: 20071010
  Serious: No
  Sender: FDA-Public Use
  Company Number: US-ASTRAZENECA-2007UW02722

PATIENT
  Age: 40 Year
  Sex: Male
  Weight: 77.1 kg

DRUGS (5)
  1. CRESTOR [Suspect]
     Route: 048
     Dates: start: 20070204
  2. ZOLOFT [Concomitant]
  3. PROTONIX [Concomitant]
  4. DIOVAN [Concomitant]
  5. ASPIRIN [Concomitant]

REACTIONS (3)
  - DYSARTHRIA [None]
  - FACIAL PALSY [None]
  - PAIN IN JAW [None]
